FAERS Safety Report 10649469 (Version 4)
Quarter: 2015Q2

REPORT INFORMATION
  Report Type: Spontaneous
  Country: US (occurrence: US)
  Receive Date: 20141212
  Receipt Date: 20150514
  Transmission Date: 20150821
  Serious: Yes (Other)
  Sender: FDA-Public Use
  Company Number: US-AMGEN-USASP2014094720

PATIENT
  Age: 64 Year
  Sex: Female
  Weight: 48 kg

DRUGS (1)
  1. NPLATE [Suspect]
     Active Substance: ROMIPLOSTIM
     Indication: IMMUNE THROMBOCYTOPENIC PURPURA
     Dosage: 475 MUG, UNK
     Route: 065
     Dates: start: 2013

REACTIONS (3)
  - Splenomegaly [Unknown]
  - Hepatic cirrhosis [Unknown]
  - Platelet count abnormal [Recovered/Resolved]
